FAERS Safety Report 4917552-5 (Version None)
Quarter: 2006Q1

REPORT INFORMATION
  Report Type: 
  Country: None (occurrence: None)
  Receive Date: 20060221
  Receipt Date: 20060210
  Transmission Date: 20060701
  Serious: Yes (Death)
  Sender: FDA-Public Use
  Company Number: IT-JNJFOC-20060203912

PATIENT

DRUGS (8)
  1. CAELYX [Suspect]
     Indication: MULTIPLE MYELOMA
     Route: 042
  2. DEXAMETHASONE SODIUM PHOSPHATE [Suspect]
     Indication: MULTIPLE MYELOMA
     Route: 048
  3. THALIDOMIDE [Suspect]
     Indication: MULTIPLE MYELOMA
  4. WARFARIN [Concomitant]
  5. VITAMIN B6 [Concomitant]
  6. ZOLEDRONIC ACID [Concomitant]
  7. EPOGEN [Concomitant]
  8. CIPROFLOXACIN [Concomitant]

REACTIONS (2)
  - ARRHYTHMIA [None]
  - DIALYSIS [None]
